FAERS Safety Report 8629290 (Version 4)
Quarter: 2013Q4

REPORT INFORMATION
  Report Type: Spontaneous
  Country: BE (occurrence: BE)
  Receive Date: 20120621
  Receipt Date: 20131105
  Transmission Date: 20140711
  Serious: Yes (Other)
  Sender: FDA-Public Use
  Company Number: BE-009507513-1206USA03284

PATIENT
  Age: 68 Year
  Sex: Female

DRUGS (1)
  1. FOSAVANCE [Suspect]
     Route: 048
     Dates: start: 200702, end: 20120530

REACTIONS (2)
  - Rhabdomyolysis [Recovering/Resolving]
  - Weight decreased [Recovering/Resolving]
